FAERS Safety Report 10347033 (Version 1)
Quarter: 2014Q3

REPORT INFORMATION
  Report Type: Spontaneous
  Country: US (occurrence: None)
  Receive Date: 20140725
  Receipt Date: 20140725
  Transmission Date: 20150326
  Serious: Yes (Disabling, Other)
  Sender: FDA-Public Use
  Company Number: None

PATIENT
  Age: 60 Year
  Sex: Female
  Weight: 66.23 kg

DRUGS (1)
  1. PERCOCET [Suspect]
     Active Substance: ACETAMINOPHEN\OXYCODONE HYDROCHLORIDE
     Dosage: 1 PILL THREE TIMES DAILY TAKEN BY MOUTH
     Route: 048
     Dates: start: 20140328, end: 20140724

REACTIONS (9)
  - Product substitution issue [None]
  - Pain [None]
  - Product formulation issue [None]
  - Frustration [None]
  - Drug ineffective [None]
  - Anger [None]
  - Fatigue [None]
  - Activities of daily living impaired [None]
  - Product quality issue [None]

NARRATIVE: CASE EVENT DATE: 20140724
